FAERS Safety Report 21337585 (Version 1)
Quarter: 2022Q3

REPORT INFORMATION
  Report Type: Spontaneous
  Country: US (occurrence: None)
  Receive Date: 20220915
  Receipt Date: 20220915
  Transmission Date: 20221027
  Serious: No
  Sender: FDA-Public Use
  Company Number: None

PATIENT
  Age: 74 Year
  Sex: Female
  Weight: 63 kg

DRUGS (4)
  1. PAXLOVID [Suspect]
     Active Substance: NIRMATRELVIR\RITONAVIR
     Indication: COVID-19
     Dates: start: 20220901, end: 20220905
  2. VALSARTAN [Concomitant]
     Active Substance: VALSARTAN
  3. vitD3 [Concomitant]
  4. Peservision [Concomitant]

REACTIONS (5)
  - Rhinorrhoea [None]
  - Nasal congestion [None]
  - Cough [None]
  - Fatigue [None]
  - SARS-CoV-2 test positive [None]

NARRATIVE: CASE EVENT DATE: 20220910
